FAERS Safety Report 19517729 (Version 1)
Quarter: 2021Q3

REPORT INFORMATION
  Report Type: Spontaneous
  Country: VN (occurrence: VN)
  Receive Date: 20210712
  Receipt Date: 20210712
  Transmission Date: 20211014
  Serious: Yes (Hospitalization, Other)
  Sender: FDA-Public Use
  Company Number: VN-LUPIN PHARMACEUTICALS INC.-2021-11360

PATIENT
  Age: 54 Year
  Sex: Female

DRUGS (4)
  1. CEFTAZIDIME. [Suspect]
     Active Substance: CEFTAZIDIME
     Indication: COVID-19 PNEUMONIA
     Dosage: 4 GRAM, QD
     Route: 042
     Dates: start: 2020
  2. HYDROXYCHLOROQUINE SULFATE TABLETS [Suspect]
     Active Substance: HYDROXYCHLOROQUINE SULFATE
     Indication: COVID-19 PNEUMONIA
     Dosage: 200 MILLIGRAM, TID
     Route: 065
     Dates: start: 2020
  3. LOPINAVIR/RITONAVIR [Suspect]
     Active Substance: LOPINAVIR\RITONAVIR
     Indication: COVID-19 PNEUMONIA
     Dosage: 1 DOSAGE FORM, BID, LOPINAVIR 400 MG/ RITONAVIR 100 MG
     Route: 065
     Dates: start: 2020
  4. AZITHROMYCIN TABLETS, 500 MG [Suspect]
     Active Substance: AZITHROMYCIN
     Indication: COVID-19 PNEUMONIA
     Dosage: 500 MILLIGRAM, QD (1 PILL PER DAY)
     Route: 065
     Dates: start: 2020

REACTIONS (2)
  - Diarrhoea [Recovering/Resolving]
  - Off label use [Unknown]

NARRATIVE: CASE EVENT DATE: 2020
